FAERS Safety Report 6565078-8 (Version None)
Quarter: 2010Q1

REPORT INFORMATION
  Report Type: 
  Country: None (occurrence: None)
  Receive Date: 20100201
  Receipt Date: 20100122
  Transmission Date: 20100710
  Serious: Yes (Hospitalization)
  Sender: FDA-Public Use
  Company Number: JP-MERCK-1001USA03474

PATIENT
  Age: 79 Year
  Sex: Male
  Weight: 49 kg

DRUGS (10)
  1. COZAAR [Suspect]
     Dosage: BEFORE SLEEPING
     Route: 048
     Dates: start: 20091113, end: 20100119
  2. COZAAR [Suspect]
     Dosage: DOSE NOT CHANGED
     Route: 048
     Dates: start: 20100125
  3. LANSOPRAZOLE [Concomitant]
     Route: 065
  4. WARFARIN POTASSIUM [Concomitant]
     Route: 048
  5. DEPAS [Concomitant]
     Route: 048
  6. LUPRAC [Concomitant]
     Route: 048
  7. LOCHOL (FLUVASTATIN SODIUM) [Concomitant]
     Route: 048
  8. MYSLEE [Concomitant]
     Dosage: BEFORE SLEEPING
     Route: 048
  9. LASIX [Concomitant]
     Indication: PLEURAL EFFUSION
     Route: 048
  10. HANP [Concomitant]
     Indication: PLEURAL EFFUSION
     Route: 042

REACTIONS (7)
  - ACIDOSIS [None]
  - ATRIAL FIBRILLATION [None]
  - CARDIAC FAILURE CHRONIC [None]
  - HEPATITIS [None]
  - HYPERKALAEMIA [None]
  - PLEURAL EFFUSION [None]
  - RENAL TUBULAR DISORDER [None]
